FAERS Safety Report 8162994-0 (Version None)
Quarter: 2012Q1

REPORT INFORMATION
  Report Type: 
  Country: None (occurrence: None)
  Receive Date: 20120224
  Receipt Date: 20120215
  Transmission Date: 20120608
  Serious: Yes (Death)
  Sender: FDA-Public Use
  Company Number: MY-PFIZER INC-2012029570

PATIENT
  Age: 74 Year
  Sex: Female

DRUGS (4)
  1. CELEBREX [Suspect]
     Indication: PAIN
     Dosage: 400 MG, SINGLE
     Route: 048
     Dates: start: 20120101, end: 20120101
  2. ISORDIL [Interacting]
     Dosage: 10 MG, 3X/DAY
  3. CELEBREX [Interacting]
     Dosage: 200 MG, 2X/DAY
     Route: 048
     Dates: start: 20120102, end: 20120105
  4. ASPIRIN [Concomitant]
     Dosage: 150 MG, 1X/DAY

REACTIONS (3)
  - PULMONARY EMBOLISM [None]
  - CARDIOVASCULAR DISORDER [None]
  - DRUG INTERACTION [None]
